FAERS Safety Report 25532646 (Version 5)
Quarter: 2025Q4

REPORT INFORMATION
  Report Type: Spontaneous
  Country: GB (occurrence: GB)
  Receive Date: 20250709
  Receipt Date: 20251006
  Transmission Date: 20260118
  Serious: Yes (Death, Other)
  Sender: BIOVITRUM
  Company Number: GB-BIOVITRUM-2025-GB-009448

PATIENT
  Age: 18 Year
  Sex: Male

DRUGS (8)
  1. GAMIFANT [Suspect]
     Active Substance: EMAPALUMAB-LZSG
     Indication: Familial haemophagocytic lymphohistiocytosis
     Dosage: 1MG/KG (FIRST DOSE)
     Dates: start: 20250605
  2. GAMIFANT [Suspect]
     Active Substance: EMAPALUMAB-LZSG
     Dosage: 655MG (10MG/KG)
     Dates: end: 20250616
  3. GAMIFANT [Suspect]
     Active Substance: EMAPALUMAB-LZSG
     Dosage: 2X10MG
     Dates: start: 20250605
  4. GAMIFANT [Suspect]
     Active Substance: EMAPALUMAB-LZSG
     Dosage: 1X50MG
     Dates: start: 20250605
  5. GAMIFANT [Suspect]
     Active Substance: EMAPALUMAB-LZSG
     Dosage: 2X100MG?1X100MG
     Dates: start: 20250612
  6. GAMIFANT [Suspect]
     Active Substance: EMAPALUMAB-LZSG
     Dosage: 6X50MG
     Dates: start: 20250612
  7. GAMIFANT [Suspect]
     Active Substance: EMAPALUMAB-LZSG
     Dosage: 13X50MG
     Dates: start: 20250616
  8. GAMIFANT [Suspect]
     Active Substance: EMAPALUMAB-LZSG
     Dosage: 1X10MG
     Dates: start: 20250616

REACTIONS (3)
  - Sepsis [Fatal]
  - Drug ineffective [Unknown]
  - Haemophagocytic lymphohistiocytosis [Fatal]
